FAERS Safety Report 7323509-X (Version None)
Quarter: 2011Q1

REPORT INFORMATION
  Report Type: 
  Country: None (occurrence: None)
  Receive Date: 20110301
  Receipt Date: 20110221
  Transmission Date: 20110831
  Serious: Yes (Life-Threatening)
  Sender: FDA-Public Use
  Company Number: JP-ROCHE-753689

PATIENT
  Sex: Female
  Weight: 50 kg

DRUGS (7)
  1. METHOTREXATE [Concomitant]
     Indication: RHEUMATOID ARTHRITIS
     Dosage: DOSE FORM: PERORAL AGENT
     Route: 048
     Dates: start: 20091016, end: 20091229
  2. METHOTREXATE [Concomitant]
     Route: 048
     Dates: start: 20091030, end: 20100204
  3. PREDNISOLONE [Concomitant]
     Dosage: PREDOHAN
     Route: 048
     Dates: start: 20100507, end: 20100608
  4. METHOTREXATE [Concomitant]
     Route: 048
     Dates: start: 20100205, end: 20100422
  5. ACTEMRA [Suspect]
     Indication: RHEUMATOID ARTHRITIS
     Route: 041
     Dates: start: 20100511, end: 20101221
  6. METHOTREXATE [Concomitant]
     Route: 048
     Dates: start: 20100423, end: 20101221
  7. FOLIAMIN [Concomitant]
     Dosage: DOSE FORM: PERORAL AGENT
     Dates: start: 20100205, end: 20101221

REACTIONS (1)
  - BREAST CANCER STAGE IV [None]
